FAERS Safety Report 19731091 (Version 1)
Quarter: 2021Q3

REPORT INFORMATION
  Report Type: Spontaneous
  Country: CA (occurrence: CA)
  Receive Date: 20210821
  Receipt Date: 20210821
  Transmission Date: 20211014
  Serious: Yes (Disabling)
  Sender: FDA-Public Use
  Company Number: CA-ACCORD-235743

PATIENT
  Age: 44 Year
  Sex: Male

DRUGS (4)
  1. BUPROPION SR [Concomitant]
     Active Substance: BUPROPION HYDROCHLORIDE
  2. TOPIRAMATE. [Suspect]
     Active Substance: TOPIRAMATE
     Indication: MIGRAINE PROPHYLAXIS
     Dosage: 2 EVERY 1 DAYS
     Route: 048
  3. ZOPICLONE [Concomitant]
     Active Substance: ZOPICLONE
  4. MIRTAZAPINE. [Concomitant]
     Active Substance: MIRTAZAPINE

REACTIONS (4)
  - Amnestic disorder [Recovering/Resolving]
  - Speech disorder [Recovering/Resolving]
  - Disturbance in attention [Recovering/Resolving]
  - Psychomotor skills impaired [Recovering/Resolving]
